FAERS Safety Report 7391666-5 (Version None)
Quarter: 2011Q2

REPORT INFORMATION
  Report Type: 
  Country: None (occurrence: None)
  Receive Date: 20110404
  Receipt Date: 20110323
  Transmission Date: 20111010
  Serious: Yes (Hospitalization)
  Sender: FDA-Public Use
  Company Number: FR-PFIZER INC-2011071959

PATIENT
  Age: 5 Year
  Sex: Male
  Weight: 17 kg

DRUGS (11)
  1. SPASFON [Concomitant]
     Dosage: UNK
     Dates: start: 20110101
  2. BEDELIX [Concomitant]
     Dosage: UNK
     Dates: start: 20110101
  3. ATARAX [Suspect]
     Dosage: 17 ML, DAILY
     Route: 048
     Dates: start: 20110202, end: 20110202
  4. EDUCTYL [Concomitant]
     Dosage: UNK
     Dates: start: 20110101
  5. TRIMEBUTINE MALEATE [Concomitant]
     Dosage: UNK
     Dates: start: 20110101
  6. CHLORAL HYDRATE [Concomitant]
  7. ADVIL LIQUI-GELS [Concomitant]
     Dosage: UNK
     Dates: start: 20110101
  8. DUPHALAC [Concomitant]
     Dosage: UNK
     Dates: start: 20110101
  9. ATARAX [Suspect]
     Dosage: 10 ML, DAILY
     Route: 048
     Dates: start: 20110127, end: 20110128
  10. ATARAX [Suspect]
     Dosage: 20 ML, DAILY
     Route: 048
     Dates: start: 20110129, end: 20110201
  11. ACETAMINOPHEN [Concomitant]
     Dosage: UNK
     Dates: start: 20110101

REACTIONS (4)
  - HYPERNATRAEMIA [None]
  - TRANSAMINASES INCREASED [None]
  - ALANINE AMINOTRANSFERASE INCREASED [None]
  - BLOOD CREATINE PHOSPHOKINASE INCREASED [None]
